FAERS Safety Report 9177610 (Version 1)
Quarter: 2013Q1

REPORT INFORMATION
  Report Type: Spontaneous
  Country: US (occurrence: None)
  Receive Date: 20130315
  Receipt Date: 20130315
  Transmission Date: 20140127
  Serious: Yes (Hospitalization)
  Sender: FDA-Public Use
  Company Number: AXC-2013-000034

PATIENT
  Age: 75 Year
  Sex: Male
  Weight: 57.6 kg

DRUGS (8)
  1. ZENPEP [Suspect]
     Indication: PANCREATIC INSUFFICIENCY
     Dosage: 10000 USP, WITH SNACKS, ORAL
     Route: 048
     Dates: start: 201205, end: 2012
  2. ZENPEP [Suspect]
     Indication: PANCREATIC INSUFFICIENCY
     Dosage: 20000 USP, TID, ORAL
     Route: 048
     Dates: start: 2012, end: 2013
  3. AVODART (DUTASTERIDE) [Concomitant]
  4. ATENOLOL [Concomitant]
  5. ALPRAZOLAM (ALPRAZOLAM) [Concomitant]
  6. MIRTAZAPINE (MIRTAZAPINE) [Concomitant]
  7. ATROVASTATIN (ATORAVASTATIN) [Concomitant]
  8. PREVACID (LANSOPRAZOLE) [Concomitant]

REACTIONS (4)
  - Gallbladder operation [None]
  - Throat tightness [None]
  - Vomiting [None]
  - Wrong technique in drug usage process [None]
